FAERS Safety Report 6177263-8 (Version None)
Quarter: 2009Q2

REPORT INFORMATION
  Report Type: 
  Country: None (occurrence: None)
  Receive Date: 20090504
  Receipt Date: 20090428
  Transmission Date: 20091009
  Serious: Yes (Other)
  Sender: FDA-Public Use
  Company Number: BR-ASTRAZENECA-2009UW10708

PATIENT
  Age: 76 Year
  Sex: Female

DRUGS (4)
  1. ATACAND HCT [Suspect]
     Indication: HYPERTENSION
     Dosage: 8 + 12.5 MG QD THEN DUE TO HYPERTENSION DOSAGE INCREASED TO 16 + 12.5 MG QD
     Route: 048
     Dates: start: 20070101, end: 20090427
  2. CRESTOR [Suspect]
     Indication: HYPERCHOLESTEROLAEMIA
     Route: 048
     Dates: start: 20060101
  3. FLUOXETINE [Concomitant]
     Indication: DEPRESSION
     Dates: start: 20080101
  4. RIVOTRIL [Concomitant]
     Indication: DEPRESSION
     Dates: start: 20080101

REACTIONS (4)
  - BLOOD PRESSURE INCREASED [None]
  - DEPRESSION [None]
  - HEADACHE [None]
  - NECK PAIN [None]
